FAERS Safety Report 21691829 (Version 1)
Quarter: 2022Q4

REPORT INFORMATION
  Report Type: Spontaneous
  Country: CN (occurrence: CN)
  Receive Date: 20221207
  Receipt Date: 20221207
  Transmission Date: 20230112
  Serious: Yes (Other)
  Sender: FDA-Public Use
  Company Number: None

PATIENT
  Age: 41 Year
  Sex: Female
  Weight: 53 kg

DRUGS (8)
  1. CYCLOPHOSPHAMIDE [Suspect]
     Active Substance: CYCLOPHOSPHAMIDE
     Indication: Non-Hodgkin^s lymphoma
     Dosage: 600MG, ONCE EVERY 3 DAYS DILUTED WITH SODIUM CHLORIDE 100 ML
     Route: 041
     Dates: start: 20221026, end: 20221028
  2. SODIUM CHLORIDE [Suspect]
     Active Substance: SODIUM CHLORIDE
     Indication: Medication dilution
     Dosage: 100 ML, ONCE EVERY 3 DAYS USED TO DILUTE 600 MG OF CYCLOPHOSPHAMIDE
     Route: 065
     Dates: start: 20221026, end: 20221028
  3. SODIUM CHLORIDE [Suspect]
     Active Substance: SODIUM CHLORIDE
     Dosage: 30 ML, QD, USED TO DILUTE 2 MG OF VINDISINE SULFATE
     Route: 042
     Dates: start: 20221026, end: 20221028
  4. DEXTROSE MONOHYDRATE [Suspect]
     Active Substance: DEXTROSE MONOHYDRATE
     Indication: Medication dilution
     Dosage: 150 ML, QD, USED TO DILUTE 20 MG OF DOXORUBICIN HYDROCHLORIDE LIPOSOME, ROUTE: INTRA PUMP INJECTION
     Route: 050
     Dates: start: 20221026, end: 20221026
  5. DEXTROSE MONOHYDRATE [Suspect]
     Active Substance: DEXTROSE MONOHYDRATE
     Dosage: 150 ML, QD USED TO DILUTE 38 MG OF DOXORUBICIN HYDROCHLORIDE LIPOSOME, ROUTE: INTRA PUMP INJECTION
     Route: 050
     Dates: start: 20221028, end: 20221028
  6. VINDESINE SULFATE [Suspect]
     Active Substance: VINDESINE SULFATE
     Indication: Non-Hodgkin^s lymphoma
     Dosage: 2 MG, ONCE EVERY 3 DAYS DILUTED WITH SODIUM CHLORIDE 30 ML
     Route: 042
     Dates: start: 20221026, end: 20221028
  7. DOXORUBICIN HYDROCHLORIDE [Suspect]
     Active Substance: DOXORUBICIN HYDROCHLORIDE
     Indication: Non-Hodgkin^s lymphoma
     Dosage: 20 MG, QD, DILUTED WITH GLUCOSE 150 ML, ROUTE: INTRA PUMP INJECTION
     Route: 050
     Dates: start: 20221026, end: 20221026
  8. DOXORUBICIN HYDROCHLORIDE [Suspect]
     Active Substance: DOXORUBICIN HYDROCHLORIDE
     Dosage: 38 MG, QD, DILUTED WITH GLUCOSE 150 ML, ROUTE: INTRA PUMP INJECTION
     Route: 050
     Dates: start: 20221028, end: 20221028

REACTIONS (1)
  - Myelosuppression [Recovering/Resolving]

NARRATIVE: CASE EVENT DATE: 20221102
